FAERS Safety Report 17452875 (Version 1)
Quarter: 2020Q1

REPORT INFORMATION
  Report Type: Spontaneous
  Country: GB (occurrence: GB)
  Receive Date: 20200224
  Receipt Date: 20200224
  Transmission Date: 20200409
  Serious: Yes (Other)
  Sender: FDA-Public Use
  Company Number: GB-AMGEN-GBRSP2020029527

PATIENT
  Age: 55 Year
  Sex: Male
  Weight: 100 kg

DRUGS (3)
  1. AMGEVITA [Suspect]
     Active Substance: ADALIMUMAB
     Indication: PSORIASIS
     Dosage: 40 MILLIGRAM, Q2WK
     Route: 065
     Dates: start: 20190301, end: 20191213
  2. METHOTREXATE. [Concomitant]
     Active Substance: METHOTREXATE
     Dosage: UNK
     Dates: start: 20190212
  3. FOLIC ACID. [Concomitant]
     Active Substance: FOLIC ACID
     Dosage: UNK
     Dates: start: 20100112

REACTIONS (2)
  - Myocardial infarction [Unknown]
  - Angina pectoris [Unknown]

NARRATIVE: CASE EVENT DATE: 20190801
